FAERS Safety Report 7397549-9 (Version None)
Quarter: 2011Q2

REPORT INFORMATION
  Report Type: 
  Country: None (occurrence: None)
  Receive Date: 20110406
  Receipt Date: 20110325
  Transmission Date: 20111010
  Serious: Yes (Other)
  Sender: FDA-Public Use
  Company Number: US-JNJFOC-20110401101

PATIENT
  Sex: Male

DRUGS (1)
  1. ROLAIDS TAB [Suspect]
     Indication: DYSPEPSIA
     Dosage: 2-4 TABLETS ^WHENEVER I NEED THEM^.
     Route: 048

REACTIONS (3)
  - BLINDNESS [None]
  - PRODUCT QUALITY ISSUE [None]
  - BALANCE DISORDER [None]
